FAERS Safety Report 8230561-6 (Version None)
Quarter: 2012Q1

REPORT INFORMATION
  Report Type: 
  Country: None (occurrence: None)
  Receive Date: 20120322
  Receipt Date: 20120322
  Transmission Date: 20120608
  Serious: Yes (Hospitalization)
  Sender: FDA-Public Use
  Company Number: None

PATIENT
  Sex: Male
  Weight: 93.6 kg

DRUGS (6)
  1. LEVOTHYROXINE SODIUM [Concomitant]
  2. FLUDARABINE PHOSPHATE [Suspect]
     Indication: CHRONIC LYMPHOCYTIC LEUKAEMIA
     Dosage: 54.5 MG DAILY X5 Q28DAYS IV
     Route: 042
     Dates: start: 20120227, end: 20120302
  3. ACYCLOVIR [Concomitant]
  4. BACTRIM [Concomitant]
  5. SEROQUEL [Concomitant]
  6. METHOXYAMINE [Suspect]
     Indication: CHRONIC LYMPHOCYTIC LEUKAEMIA
     Dosage: 32.7 MG DAY1 Q 28DAYS IV
     Route: 042
     Dates: start: 20120227

REACTIONS (2)
  - PYREXIA [None]
  - NEUTROPHIL COUNT DECREASED [None]
